FAERS Safety Report 23939847 (Version 1)
Quarter: 2024Q2

REPORT INFORMATION
  Report Type: Report from Study
  Country: US (occurrence: US)
  Receive Date: 20240605
  Receipt Date: 20240605
  Transmission Date: 20240716
  Serious: Yes (Hospitalization)
  Sender: FDA-Public Use
  Company Number: US-ABBVIE-5782521

PATIENT
  Sex: Female

DRUGS (1)
  1. RESTASIS [Suspect]
     Active Substance: CYCLOSPORINE
     Indication: Product used for unknown indication
     Dosage: STRENGTH: 0.5MG/ML ?FREQUENCY TEXT: ONE DROP DAILY ON BOTH EYES
     Route: 047
     Dates: start: 20190713

REACTIONS (1)
  - Ankle fracture [Unknown]
